FAERS Safety Report 8414447-X (Version None)
Quarter: 2012Q2

REPORT INFORMATION
  Report Type: 
  Country: None (occurrence: None)
  Receive Date: 20120605
  Receipt Date: 20120530
  Transmission Date: 20120825
  Serious: Yes (Other)
  Sender: FDA-Public Use
  Company Number: US-FRI-1000030940

PATIENT
  Sex: Male

DRUGS (2)
  1. BYSTOLIC [Suspect]
  2. PREDNISONE [Concomitant]

REACTIONS (1)
  - MUCKLE-WELLS SYNDROME [None]
